FAERS Safety Report 5817336-X (Version None)
Quarter: 2008Q3

REPORT INFORMATION
  Report Type: 
  Country: None (occurrence: None)
  Receive Date: 20080715
  Receipt Date: 20080630
  Transmission Date: 20090109
  Serious: Yes (Life-Threatening, Hospitalization)
  Sender: FDA-Public Use
  Company Number: DSM-2008-00604

PATIENT
  Age: 84 Year
  Sex: Female

DRUGS (3)
  1. OLMETEC (OLMESARTAN MEDOXOMIL) (TABLET) (OLMESARTAN) [Suspect]
     Indication: HYPERTENSION
     Dosage: ORAL
     Route: 048
     Dates: end: 20080521
  2. ISOPTIN [Suspect]
     Indication: SUPRAVENTRICULAR EXTRASYSTOLES
     Dosage: ORAL
     Route: 048
     Dates: end: 20080521
  3. TRIATEC (RAMIPRIL) (RAMIPRIL) [Suspect]
     Indication: HYPERTENSION
     Dosage: ORAL
     Dates: end: 20080521

REACTIONS (6)
  - ATRIAL FIBRILLATION [None]
  - BUNDLE BRANCH BLOCK RIGHT [None]
  - CARDIAC FAILURE [None]
  - CARDIO-RESPIRATORY ARREST [None]
  - HAEMODIALYSIS [None]
  - HYPERKALAEMIA [None]
